FAERS Safety Report 5463865-0 (Version None)
Quarter: 2007Q3

REPORT INFORMATION
  Report Type: 
  Country: None (occurrence: None)
  Receive Date: 20070817
  Receipt Date: 20070525
  Transmission Date: 20080115
  Serious: Yes (Hospitalization)
  Sender: FDA-Public Use
  Company Number: 16679

PATIENT
  Age: 50 Year
  Sex: Male

DRUGS (4)
  1. LEUCOVORIN CALCIUM [Suspect]
     Indication: COLORECTAL CANCER METASTATIC
     Dosage: 832 MG FORTNIGHTLY IV
     Route: 042
     Dates: start: 20061120
  2. BEVACIZUMAB [Suspect]
     Indication: COLORECTAL CANCER METASTATIC
     Dosage: 427 MG FORTNIGHTLY IV
     Route: 042
     Dates: start: 20061120
  3. FLUOROURACIL [Suspect]
     Indication: COLORECTAL CANCER METASTATIC
     Dosage: 832 MG FORTNIGHTLY IV
     Route: 042
     Dates: start: 20061120
  4. OXALIPLATIN [Suspect]
     Indication: COLORECTAL CANCER METASTATIC
     Dosage: 176 MG FORTNIGHTLY IV
     Route: 042
     Dates: start: 20061120

REACTIONS (1)
  - THROMBOCYTOPENIA [None]
